FAERS Safety Report 9796523 (Version 1)
Quarter: 2014Q1

REPORT INFORMATION
  Report Type: Spontaneous
  Country: US (occurrence: US)
  Receive Date: 20140103
  Receipt Date: 20140103
  Transmission Date: 20141002
  Serious: Yes (Death, Other)
  Sender: FDA-Public Use
  Company Number: US-UCBSA-107727

PATIENT
  Age: 34 Year
  Sex: Male

DRUGS (6)
  1. ALPRAZOLAM [Suspect]
  2. HYDROCODONE [Suspect]
  3. OXYCODONE [Suspect]
  4. CYCLOBENZAPRINE [Suspect]
  5. BUPROPION [Suspect]
  6. DEXTROMETHORPHAN [Suspect]

REACTIONS (1)
  - Drug abuse [Fatal]
